FAERS Safety Report 5976008-1 (Version None)
Quarter: 2008Q4

REPORT INFORMATION
  Report Type: 
  Country: None (occurrence: None)
  Receive Date: 20081124
  Receipt Date: 20071019
  Transmission Date: 20090506
  Serious: Yes (Hospitalization, Other)
  Sender: FDA-Public Use
  Company Number: 42019

PATIENT
  Age: 54 Year
  Sex: Male
  Weight: 92 kg

DRUGS (3)
  1. AMIODARONE HCL [Suspect]
     Indication: ATRIAL FIBRILLATION
     Dosage: 900MG/DAILY/IV
     Route: 042
     Dates: start: 20071005, end: 20071006
  2. AMIODARONE HCL [Suspect]
     Indication: ATRIAL FIBRILLATION
     Dosage: 900MG/DAILY/IV
     Route: 042
     Dates: start: 20071014, end: 20071016
  3. HOSPIRA VISIV [Concomitant]

REACTIONS (2)
  - PHLEBITIS [None]
  - RASH [None]
